FAERS Safety Report 4922938-9 (Version None)
Quarter: 2006Q1

REPORT INFORMATION
  Report Type: 
  Country: None (occurrence: None)
  Receive Date: 20060224
  Receipt Date: 20050624
  Transmission Date: 20060701
  Serious: Yes (Life-Threatening, Hospitalization, Disabling)
  Sender: FDA-Public Use
  Company Number: NO-MERCK-0506NOR00023

PATIENT
  Age: 61 Year
  Sex: Male

DRUGS (4)
  1. VIOXX [Suspect]
     Indication: RHEUMATOID ARTHRITIS
     Route: 048
     Dates: start: 20010406, end: 20031104
  2. VIOXX [Suspect]
     Route: 048
     Dates: start: 20040101, end: 20041001
  3. METHOTREXATE [Concomitant]
     Route: 048
     Dates: start: 20000801
  4. PREDNISOLONE [Concomitant]
     Route: 048
     Dates: start: 20000401

REACTIONS (5)
  - ANGINA PECTORIS [None]
  - CARDIAC ARREST [None]
  - CORONARY ARTERY STENOSIS [None]
  - MYOCARDIAL INFARCTION [None]
  - ULCER HAEMORRHAGE [None]
